FAERS Safety Report 9090419 (Version 1)
Quarter: 2013Q1

REPORT INFORMATION
  Report Type: Spontaneous
  Country: DE (occurrence: DE)
  Receive Date: 20130219
  Receipt Date: 20130219
  Transmission Date: 20140127
  Serious: Yes (Other)
  Sender: FDA-Public Use
  Company Number: DE-AMGEN-DEUSP2013010248

PATIENT
  Age: 65 Year
  Sex: Female

DRUGS (8)
  1. ENBREL [Suspect]
     Indication: PSORIASIS
     Dosage: 50 MG, 1X WEEKLY
     Dates: start: 20090505
  2. RAMILEX [Concomitant]
     Dosage: UNK
  3. ASS [Concomitant]
     Dosage: 100 UNK, UNK
  4. METFORMIN HYDROCHLORIDE [Concomitant]
     Dosage: UNK
  5. SIMVABETA [Concomitant]
     Dosage: 20 MG, UNK
  6. NEBIVOLOL [Concomitant]
     Dosage: 20 MG, UNK
  7. NEBIVOLOL [Concomitant]
     Dosage: UNK
  8. JODID [Concomitant]
     Dosage: UNK

REACTIONS (1)
  - Coronary artery occlusion [Recovered/Resolved]
